FAERS Safety Report 10211692 (Version 2)
Quarter: 2014Q2

REPORT INFORMATION
  Report Type: Report from Study
  Country: US (occurrence: US)
  Receive Date: 20140602
  Receipt Date: 20140619
  Transmission Date: 20141212
  Serious: Yes (Hospitalization, Other)
  Sender: FDA-Public Use
  Company Number: US-TAKEDA-2014TUS004331

PATIENT
  Age: 63 Year
  Sex: Male
  Weight: 99.77 kg

DRUGS (10)
  1. PREVACID [Suspect]
     Indication: GASTROOESOPHAGEAL REFLUX DISEASE
     Dosage: 30 MG, QD
  2. HUMLRA [Suspect]
     Indication: PSORIATIC ARTHROPATHY
     Dosage: 40 MG, 1 IN 2 WEEKS
     Dates: start: 201303, end: 20140112
  3. DICLOFENAC [Suspect]
     Indication: PAIN
     Dosage: 75 MG, UNK
  4. COLCRYS [Concomitant]
     Dosage: 0.6 MG, UNK
  5. BENAZEPRIL [Concomitant]
     Dosage: 120 MG, UNK
  6. AMIODARONE [Concomitant]
  7. ENBREL [Concomitant]
  8. METHOTREXATE [Concomitant]
  9. PENICILLIN NOS [Concomitant]
  10. SULFADIAZINE [Suspect]

REACTIONS (15)
  - Cardiac failure [Unknown]
  - Gait disturbance [Unknown]
  - Blood calcium decreased [Recovered/Resolved]
  - Blood potassium decreased [Recovered/Resolved]
  - Abdominal discomfort [Unknown]
  - Joint swelling [Unknown]
  - Malaise [Unknown]
  - Nausea [Unknown]
  - Drug interaction [Unknown]
  - Malaise [Unknown]
  - Blood magnesium decreased [Recovered/Resolved]
  - Diarrhoea [Recovered/Resolved]
  - Nausea [Unknown]
  - Nausea [Unknown]
  - Arthralgia [Unknown]
